FAERS Safety Report 7543508-2 (Version None)
Quarter: 2011Q2

REPORT INFORMATION
  Report Type: 
  Country: None (occurrence: None)
  Receive Date: 20110613
  Receipt Date: 20010824
  Transmission Date: 20111010
  Serious: Yes (Hospitalization)
  Sender: FDA-Public Use
  Company Number: PHEH2001US04473

PATIENT
  Sex: Female

DRUGS (11)
  1. DITROPAN [Concomitant]
  2. PROTONIX [Concomitant]
  3. ASCORBIC ACID [Concomitant]
  4. DILTIAZEM [Concomitant]
  5. HYDROCHLOROTHIAZIDE [Concomitant]
  6. VITAMIN E [Concomitant]
  7. LIPITOR [Concomitant]
  8. EXELON [Suspect]
     Indication: DEMENTIA ALZHEIMER'S TYPE
     Dosage: 1.5 MG, BID
     Route: 048
     Dates: start: 20000921, end: 20010709
  9. MECLIZINE HYDROCHLORIDE [Concomitant]
  10. ASPIRIN [Concomitant]
  11. RISPERDAL [Concomitant]

REACTIONS (6)
  - BLOOD POTASSIUM DECREASED [None]
  - DYSPHAGIA [None]
  - BLOOD MAGNESIUM DECREASED [None]
  - MYOCARDIAL INFARCTION [None]
  - MUSCULAR WEAKNESS [None]
  - THROAT TIGHTNESS [None]
